FAERS Safety Report 7679367-7 (Version None)
Quarter: 2011Q3

REPORT INFORMATION
  Report Type: 
  Country: None (occurrence: None)
  Receive Date: 20110812
  Receipt Date: 20110805
  Transmission Date: 20111222
  Serious: Yes (Other)
  Sender: FDA-Public Use
  Company Number: PHHY2009JP22899

PATIENT
  Age: 68 Year
  Sex: Female

DRUGS (4)
  1. PROPETO [Concomitant]
  2. FLUMETHOLON [Concomitant]
  3. ZADITEN [Suspect]
     Indication: CONJUNCTIVITIS ALLERGIC
     Dosage: 4 DF, QD
     Route: 047
     Dates: end: 20090501
  4. PREDNISOLONE ACETATE [Concomitant]
     Route: 047

REACTIONS (3)
  - BLEPHARITIS [None]
  - EYELID OEDEMA [None]
  - DERMATITIS CONTACT [None]
